FAERS Safety Report 7651606-8 (Version None)
Quarter: 2011Q3

REPORT INFORMATION
  Report Type: 
  Country: None (occurrence: None)
  Receive Date: 20110802
  Receipt Date: 20110729
  Transmission Date: 20111222
  Serious: Yes (Other)
  Sender: FDA-Public Use
  Company Number: CHPA2011US10112

PATIENT
  Age: 74 Year
  Sex: Female
  Weight: 56.689 kg

DRUGS (2)
  1. MAALOX ADV MAXIMUM STRENGTH ANTACID/ANTIGAS [Suspect]
     Indication: GASTROOESOPHAGEAL REFLUX DISEASE
  2. MAALOX ADV MAXIMUM STRENGTH ANTACID/ANTIGAS [Suspect]
     Indication: DYSPEPSIA
     Dosage: 1 TO 1.5 TSP, A DAY
     Route: 048

REACTIONS (4)
  - NEPHROLITHIASIS [None]
  - OFF LABEL USE [None]
  - URINARY TRACT INFECTION [None]
  - INCORRECT DRUG ADMINISTRATION DURATION [None]
